FAERS Safety Report 10302443 (Version 1)
Quarter: 2014Q3

REPORT INFORMATION
  Report Type: Spontaneous
  Country: FR (occurrence: FR)
  Receive Date: 20140714
  Receipt Date: 20140714
  Transmission Date: 20150326
  Serious: Yes (Other)
  Sender: FDA-Public Use
  Company Number: FR-MYLANLABS-2014S1015982

PATIENT
  Sex: Male

DRUGS (7)
  1. AMPHOTERICIN B, LIPOSOME [Suspect]
     Active Substance: AMPHOTERICIN B
     Indication: ASPERGILLUS INFECTION
     Dosage: 5 MG/KG THREE TIMES A WEEK, THEN 3 MG/KG THREE TIMES A WEEK
     Route: 042
     Dates: end: 201205
  2. AMPHOTERICIN B, LIPOSOME [Suspect]
     Active Substance: AMPHOTERICIN B
     Indication: ASPERGILLUS INFECTION
     Dosage: 6 MG/KG/DAY, THEN 10 MG/KG/DAY
     Route: 042
     Dates: end: 201205
  3. AMPHOTERICIN B, LIPOSOME [Suspect]
     Active Substance: AMPHOTERICIN B
     Indication: ASPERGILLUS INFECTION
     Dosage: 10 MG/KG/DAY, THEN 10 MG/KG THREE TIMES A WEEK
     Route: 042
     Dates: end: 201205
  4. AMPHOTERICIN B, LIPOSOME [Suspect]
     Active Substance: AMPHOTERICIN B
     Indication: ASPERGILLUS INFECTION
     Dosage: 10 MG/KG THREE TIMES A WEEK, THEN 5 MG/KG THREE TIMES A WEEK
     Route: 042
     Dates: end: 201205
  5. AMPHOTERICIN B, LIPOSOME [Suspect]
     Active Substance: AMPHOTERICIN B
     Indication: ASPERGILLUS INFECTION
     Dosage: 3 MG/KG THREE TIMES A WEEK
     Route: 042
     Dates: end: 201205
  6. VORICONAZOLE. [Suspect]
     Active Substance: VORICONAZOLE
     Indication: ANTIFUNGAL PROPHYLAXIS
     Route: 065
  7. ITRACONAZOLE. [Concomitant]
     Active Substance: ITRACONAZOLE
     Indication: ANTIFUNGAL PROPHYLAXIS
     Route: 065

REACTIONS (4)
  - Pancytopenia [Unknown]
  - Drug-induced liver injury [Unknown]
  - Hepatosplenomegaly [Unknown]
  - Histiocytosis [Unknown]
